FAERS Safety Report 11362339 (Version 1)
Quarter: 2015Q3

REPORT INFORMATION
  Report Type: Spontaneous
  Country: US (occurrence: US)
  Receive Date: 20150810
  Receipt Date: 20150810
  Transmission Date: 20151125
  Serious: Yes (Hospitalization)
  Sender: FDA-Public Use
  Company Number: PHHY2015US092248

PATIENT
  Age: 19 Year
  Sex: Male

DRUGS (2)
  1. PERPHENAZINE. [Suspect]
     Active Substance: PERPHENAZINE
     Dosage: 8 MG, UNK
     Route: 065
  2. PERPHENAZINE. [Suspect]
     Active Substance: PERPHENAZINE
     Indication: HALLUCINATION, AUDITORY
     Dosage: 36 MG, UNK
     Route: 065

REACTIONS (4)
  - Hyperosmolar hyperglycaemic state [Recovered/Resolved]
  - Fatigue [Recovered/Resolved]
  - Pollakiuria [Recovered/Resolved]
  - Dizziness [Recovered/Resolved]
